FAERS Safety Report 8134900-6 (Version None)
Quarter: 2012Q1

REPORT INFORMATION
  Report Type: 
  Country: None (occurrence: None)
  Receive Date: 20120214
  Receipt Date: 20120203
  Transmission Date: 20120608
  Serious: Yes (Other)
  Sender: FDA-Public Use
  Company Number: JP-JNJFOC-20090905928

PATIENT
  Sex: Male
  Weight: 58 kg

DRUGS (8)
  1. REMICADE [Suspect]
     Indication: RHEUMATOID ARTHRITIS
     Route: 042
     Dates: start: 20040801
  2. REMICADE [Suspect]
     Route: 042
     Dates: start: 20051227
  3. CYTOTEC [Concomitant]
     Indication: PROPHYLAXIS AGAINST GASTROINTESTINAL ULCER
     Dosage: DOSE REPORTED AS ^400 RG^
     Route: 048
  4. REMICADE [Suspect]
     Dosage: TOTAL NUMBER OF INFUSIONS = 2
     Route: 042
     Dates: start: 20040421
  5. VOLTAREN-XR [Concomitant]
     Indication: RHEUMATOID ARTHRITIS
     Route: 048
  6. REMICADE [Suspect]
     Route: 042
     Dates: start: 20060101
  7. RHEUMATREX [Suspect]
     Indication: RHEUMATOID ARTHRITIS
     Route: 048
     Dates: end: 20060221
  8. METHOTREXATE [Suspect]
     Indication: RHEUMATOID ARTHRITIS
     Route: 065
     Dates: start: 20040801, end: 20060101

REACTIONS (3)
  - PULMONARY FIBROSIS [None]
  - RHEUMATOID LUNG [None]
  - INTERSTITIAL LUNG DISEASE [None]
